FAERS Safety Report 12109627 (Version 1)
Quarter: 2016Q1

REPORT INFORMATION
  Report Type: Spontaneous
  Country: US (occurrence: None)
  Receive Date: 20160222
  Receipt Date: 20160222
  Transmission Date: 20160526
  Serious: Yes (Other)
  Sender: FDA-Public Use
  Company Number: None

PATIENT
  Age: 21 Year
  Sex: Male
  Weight: 70.1 kg

DRUGS (4)
  1. ACETAMINOPHEN. [Concomitant]
     Active Substance: ACETAMINOPHEN
  2. DIPEHNHYDRAMINE [Concomitant]
  3. HYDROCORTISONE. [Concomitant]
     Active Substance: HYDROCORTISONE
  4. REMICADE [Suspect]
     Active Substance: INFLIXIMAB
     Indication: CROHN^S DISEASE
     Route: 042
     Dates: start: 20110101, end: 20160211

REACTIONS (4)
  - Ocular hyperaemia [None]
  - Hypersensitivity [None]
  - Eye swelling [None]
  - Eye pruritus [None]

NARRATIVE: CASE EVENT DATE: 20151222
